FAERS Safety Report 10044662 (Version 3)
Quarter: 2014Q2

REPORT INFORMATION
  Report Type: Report from Study
  Country: US (occurrence: US)
  Receive Date: 20140328
  Receipt Date: 20140418
  Transmission Date: 20141212
  Serious: Yes (Hospitalization)
  Sender: FDA-Public Use
  Company Number: US-PFIZER INC-2014079425

PATIENT
  Age: 59 Year
  Sex: Male
  Weight: 51.3 kg

DRUGS (5)
  1. AXITINIB [Suspect]
     Indication: SQUAMOUS CELL CARCINOMA OF THE TONGUE
     Dosage: 10 MG, 2X/DAY
     Route: 048
     Dates: start: 20140129, end: 20140314
  2. ATIVAN [Concomitant]
     Dosage: 0.5 MG, UNK
  3. NYSTATIN [Concomitant]
     Dosage: 100000 UNITS/ML, FORMULATION: SUSPENSION
  4. ROXICODONE [Concomitant]
     Dosage: 5 MG, IR TABLET
  5. COLACE [Concomitant]
     Dosage: 100 MG, UNK

REACTIONS (1)
  - Atrial fibrillation [Recovered/Resolved]
